FAERS Safety Report 15779095 (Version 1)
Quarter: 2019Q1

REPORT INFORMATION
  Report Type: Spontaneous
  Country: US (occurrence: US)
  Receive Date: 20190101
  Receipt Date: 20190101
  Transmission Date: 20190417
  Serious: No
  Sender: FDA-Public Use
  Company Number: US-ASTRAZENECA-2018SF61592

PATIENT
  Sex: Female
  Weight: 67.8 kg

DRUGS (1)
  1. BYDUREON BCISE [Suspect]
     Active Substance: EXENATIDE
     Indication: TYPE 2 DIABETES MELLITUS
     Route: 058

REACTIONS (7)
  - Weight decreased [Unknown]
  - Malaise [Recovered/Resolved]
  - Defaecation urgency [Unknown]
  - Decreased appetite [Unknown]
  - Appetite disorder [Unknown]
  - Infrequent bowel movements [Unknown]
  - Abdominal distension [Unknown]
